FAERS Safety Report 8296951-0 (Version None)
Quarter: 2012Q2

REPORT INFORMATION
  Report Type: 
  Country: None (occurrence: None)
  Receive Date: 20120419
  Receipt Date: 20120410
  Transmission Date: 20120825
  Serious: No
  Sender: FDA-Public Use
  Company Number: US-BIOGENIDEC-2012BI012780

PATIENT
  Age: 52 Year
  Sex: Female

DRUGS (2)
  1. TYSABRI [Suspect]
     Indication: MULTIPLE SCLEROSIS
     Route: 042
     Dates: start: 20111109, end: 20120217
  2. AVONEX [Concomitant]
     Indication: MULTIPLE SCLEROSIS
     Route: 030
     Dates: start: 20080104

REACTIONS (6)
  - ABDOMINAL PAIN [None]
  - URTICARIA [None]
  - HEADACHE [None]
  - VAGINAL LESION [None]
  - EAR PAIN [None]
  - RESPIRATORY TRACT INFECTION [None]
